FAERS Safety Report 18019210 (Version 1)
Quarter: 2020Q3

REPORT INFORMATION
  Report Type: Spontaneous
  Country: US (occurrence: US)
  Receive Date: 20200713
  Receipt Date: 20200713
  Transmission Date: 20201103
  Serious: No
  Sender: FDA-Public Use
  Company Number: None

PATIENT
  Sex: Male

DRUGS (1)
  1. FINASTERIDE 5 MG [Suspect]
     Active Substance: FINASTERIDE

REACTIONS (3)
  - Fall [None]
  - Therapy change [None]
  - Hypotension [None]
